FAERS Safety Report 5466252-4 (Version None)
Quarter: 2007Q3

REPORT INFORMATION
  Report Type: 
  Country: None (occurrence: None)
  Receive Date: 20070919
  Receipt Date: 20070912
  Transmission Date: 20080115
  Serious: Yes (Hospitalization)
  Sender: FDA-Public Use
  Company Number: 2007SP018349

PATIENT

DRUGS (1)
  1. VIRAFERONPEG [Suspect]
     Indication: HEPATITIS C

REACTIONS (2)
  - ALCOHOL DETOXIFICATION [None]
  - DEPRESSION [None]
